FAERS Safety Report 17298428 (Version 9)
Quarter: 2020Q2

REPORT INFORMATION
  Report Type: Report from Study
  Country: US (occurrence: US)
  Receive Date: 20200122
  Receipt Date: 20200413
  Transmission Date: 20200713
  Serious: Yes (Hospitalization, Other)
  Sender: FDA-Public Use
  Company Number: NVSC2020US012953

PATIENT
  Age: 50 Year
  Sex: Male

DRUGS (1)
  1. GILENYA [Suspect]
     Active Substance: FINGOLIMOD HYDROCHLORIDE
     Indication: MULTIPLE SCLEROSIS
     Dosage: UNK, QD
     Route: 048
     Dates: start: 201101, end: 202001

REACTIONS (16)
  - Fatigue [Unknown]
  - Ageusia [Recovered/Resolved]
  - Multiple sclerosis relapse [Unknown]
  - Depression [Unknown]
  - Ageusia [Unknown]
  - Irritability [Unknown]
  - Balance disorder [Unknown]
  - Dehydration [Unknown]
  - Progressive relapsing multiple sclerosis [Unknown]
  - Anxiety [Unknown]
  - Dysphagia [Unknown]
  - Paraesthesia [Unknown]
  - Pain in extremity [Unknown]
  - Dysphagia [Recovered/Resolved]
  - Limb discomfort [Unknown]
  - Lhermitte^s sign [Unknown]

NARRATIVE: CASE EVENT DATE: 201412
